FAERS Safety Report 9790421 (Version 3)
Quarter: 2014Q2

REPORT INFORMATION
  Report Type: Spontaneous
  Country: JP (occurrence: JP)
  Receive Date: 20131231
  Receipt Date: 20140423
  Transmission Date: 20141212
  Serious: Yes (Disabling)
  Sender: FDA-Public Use
  Company Number: JP-MALLINCKRODT-T201305124

PATIENT
  Age: 54 Year
  Sex: Male
  Weight: 73.6 kg

DRUGS (12)
  1. METHADONE [Suspect]
     Indication: CANCER PAIN
     Dosage: 5 MG, (15 MG DAILY DOSE)
     Route: 048
     Dates: start: 20131205, end: 20131206
  2. METHADONE [Suspect]
     Dosage: 5 MG, (5 MG DAILY DOSE)
     Route: 048
     Dates: start: 20131207, end: 20131210
  3. METHADONE [Suspect]
     Dosage: 5 MG, (10 MG DAILY DOSE)
     Route: 048
     Dates: start: 20131211, end: 20140107
  4. METHADONE [Suspect]
     Dosage: 5 MG, (15 MG DAILY DOSE)
     Route: 048
     Dates: start: 20140108, end: 20140205
  5. MORPHINE HYDROCHLORIDE [Concomitant]
     Dosage: 20 MG, PRN
     Route: 048
     Dates: start: 20131204
  6. TS-1 [Concomitant]
     Dosage: 6 DF, UNK
     Route: 048
  7. LYRICA [Concomitant]
     Dosage: 150 MG, UNK
     Route: 048
     Dates: end: 20131211
  8. CELECOX [Concomitant]
     Dosage: 200 MG, UNK
     Route: 048
  9. MAGLAX [Concomitant]
     Dosage: 990 MG, UNK
     Route: 048
  10. PRIMPERAN [Concomitant]
     Dosage: 15 MG, UNK
     Route: 048
  11. LENDORMIN [Concomitant]
     Dosage: 0.25 MG, UNK
     Route: 048
  12. TOFRANIL [Concomitant]
     Dosage: 20 MG, UNK
     Route: 048
     Dates: end: 20131207

REACTIONS (3)
  - Respiratory depression [Recovered/Resolved]
  - Somnolence [Recovered/Resolved]
  - Malaise [Not Recovered/Not Resolved]
